FAERS Safety Report 25990485 (Version 1)
Quarter: 2025Q4

REPORT INFORMATION
  Report Type: Spontaneous
  Country: EU (occurrence: EU)
  Receive Date: 20251103
  Receipt Date: 20251103
  Transmission Date: 20260118
  Serious: Yes (Other)
  Sender: NOVARTIS
  Company Number: EU-002147023-NVSC2025DE166150

PATIENT
  Sex: Male
  Weight: 18 kg

DRUGS (4)
  1. TAFINLAR [Suspect]
     Active Substance: DABRAFENIB MESYLATE
     Indication: Langerhans^ cell histiocytosis
     Dosage: UNK
     Route: 065
     Dates: start: 2022
  2. TAFINLAR [Suspect]
     Active Substance: DABRAFENIB MESYLATE
     Indication: BRAF V600E mutation positive
  3. DABRAFENIB [Suspect]
     Active Substance: DABRAFENIB
     Indication: Langerhans^ cell histiocytosis
     Dosage: 30 MG, BID
     Route: 065
  4. DABRAFENIB [Suspect]
     Active Substance: DABRAFENIB
     Indication: BRAF V600E mutation positive

REACTIONS (2)
  - Growth retardation [Unknown]
  - Off label use [Unknown]
